FAERS Safety Report 5358359-7 (Version None)
Quarter: 2007Q2

REPORT INFORMATION
  Report Type: 
  Country: None (occurrence: None)
  Receive Date: 20070613
  Receipt Date: 20070613
  Transmission Date: 20071010
  Serious: No
  Sender: FDA-Public Use
  Company Number: None

PATIENT
  Age: 66 Year
  Sex: Male
  Weight: 90.7194 kg

DRUGS (1)
  1. SEPTOCAINE [Suspect]
     Indication: LOCAL ANAESTHESIA
     Dosage: 20 MG ONE TIME INTRALESIONAL
     Route: 026
     Dates: start: 20070607, end: 20070607

REACTIONS (2)
  - HYPOAESTHESIA [None]
  - POST PROCEDURAL COMPLICATION [None]
